FAERS Safety Report 7892449-X (Version None)
Quarter: 2011Q4

REPORT INFORMATION
  Report Type: 
  Country: None (occurrence: None)
  Receive Date: 20111104
  Receipt Date: 20111026
  Transmission Date: 20120403
  Serious: Yes (Hospitalization, Other)
  Sender: FDA-Public Use
  Company Number: US-US-EMD SERONO, INC.-232869K08USA

PATIENT
  Sex: Female
  Weight: 64 kg

DRUGS (4)
  1. REBIF [Suspect]
     Route: 058
  2. REBIF [Suspect]
     Indication: MULTIPLE SCLEROSIS
     Route: 058
     Dates: start: 20060131
  3. REBIF [Suspect]
     Route: 058
  4. VITAMIN TAB [Concomitant]
     Route: 065

REACTIONS (4)
  - DYSGEUSIA [None]
  - WEIGHT DECREASED [None]
  - RENAL CANCER [None]
  - CLOSTRIDIAL INFECTION [None]
